FAERS Safety Report 4697702-9 (Version None)
Quarter: 2005Q2

REPORT INFORMATION
  Report Type: 
  Country: None (occurrence: None)
  Receive Date: 20050619
  Receipt Date: 20050619
  Transmission Date: 20051028
  Serious: Yes (Other)
  Sender: FDA-Public Use
  Company Number: None

PATIENT
  Age: 16 Year
  Sex: Female

DRUGS (2)
  1. NITROFURANTOIN [Suspect]
     Indication: DISEASE RECURRENCE
     Dosage: 50 MG PO QD
     Route: 048
     Dates: start: 19990101, end: 20000101
  2. NITROFURANTOIN [Suspect]
     Indication: URINARY TRACT INFECTION
     Dosage: 50 MG PO QD
     Route: 048
     Dates: start: 19990101, end: 20000101

REACTIONS (2)
  - DIARRHOEA [None]
  - GASTRITIS [None]
